FAERS Safety Report 8613986-6 (Version None)
Quarter: 2012Q3

REPORT INFORMATION
  Report Type: 
  Country: None (occurrence: None)
  Receive Date: 20120823
  Receipt Date: 20120820
  Transmission Date: 20120928
  Serious: No
  Sender: FDA-Public Use
  Company Number: US-PFIZER INC-2012204820

PATIENT
  Sex: Male

DRUGS (2)
  1. PRISTIQ [Suspect]
     Dosage: 100 MG, UNK
  2. PRISTIQ [Suspect]
     Dosage: 50 MG, UNK

REACTIONS (3)
  - TREMOR [None]
  - AMNESIA [None]
  - DIZZINESS [None]
